FAERS Safety Report 5487759-X (Version None)
Quarter: 2007Q4

REPORT INFORMATION
  Report Type: 
  Country: None (occurrence: None)
  Receive Date: 20071017
  Receipt Date: 20071005
  Transmission Date: 20080405
  Serious: Yes (Other)
  Sender: FDA-Public Use
  Company Number: US-JNJFOC-20071002289

PATIENT
  Sex: Female

DRUGS (5)
  1. LEVAQUIN [Suspect]
     Indication: SINUSITIS
     Route: 048
  2. UNKNOWN MEDICATION [Concomitant]
     Route: 065
  3. ATENOLOL [Concomitant]
     Route: 065
  4. ORTHO TRI-CYCLEN [Concomitant]
     Route: 065
  5. UNKNOWN MEDICATION [Concomitant]
     Route: 065

REACTIONS (2)
  - DYSKINESIA [None]
  - DYSPHAGIA [None]
